FAERS Safety Report 5815691-8 (Version None)
Quarter: 2008Q3

REPORT INFORMATION
  Report Type: 
  Country: None (occurrence: None)
  Receive Date: 20080716
  Receipt Date: 20080711
  Transmission Date: 20090109
  Serious: Yes (Hospitalization)
  Sender: FDA-Public Use
  Company Number: A0737440A

PATIENT
  Age: 28 Year
  Sex: Male

DRUGS (1)
  1. DIPHENHYDRAMINE HYDROCHLORIDE CAP [Suspect]
     Indication: SLEEP DISORDER

REACTIONS (9)
  - BLOOD PRESSURE INCREASED [None]
  - COLITIS ULCERATIVE [None]
  - GASTRIC ULCER HAEMORRHAGE [None]
  - GASTROENTERITIS VIRAL [None]
  - HYPOPHAGIA [None]
  - INCORRECT DOSE ADMINISTERED [None]
  - INTENTIONAL DRUG MISUSE [None]
  - LACRIMATION INCREASED [None]
  - PAIN [None]
